FAERS Safety Report 5166016-5 (Version None)
Quarter: 2006Q4

REPORT INFORMATION
  Report Type: 
  Country: None (occurrence: None)
  Receive Date: 20061128
  Receipt Date: 20061114
  Transmission Date: 20070319
  Serious: Yes (Other)
  Sender: FDA-Public Use
  Company Number: GXKR2006US07313

PATIENT
  Sex: Female

DRUGS (3)
  1. CARBOPLATIN [Suspect]
     Indication: NEUROENDOCRINE CARCINOMA OF THE SKIN
     Dosage: 6 CYCLES (EVERY 3 WEEKS)
  2. ETOPOSIDE [Suspect]
     Indication: NEUROENDOCRINE CARCINOMA OF THE SKIN
     Dosage: 6 CYCLES (EVERY 3 WEEKS)
  3. RADIATION               (NO INGREDIENT / SUBSTANCES) [Suspect]
     Indication: NEUROENDOCRINE CARCINOMA OF THE SKIN
     Dosage: 50 GY OVER 5 WEEKS TO THE FACE AND NECK

REACTIONS (5)
  - B-CELL LYMPHOMA [None]
  - LOCAL SWELLING [None]
  - LUNG NEOPLASM [None]
  - NECK MASS [None]
  - NON-HODGKIN'S LYMPHOMA [None]
